FAERS Safety Report 10534048 (Version 3)
Quarter: 2014Q4

REPORT INFORMATION
  Report Type: Report from Study
  Country: BR (occurrence: BR)
  Receive Date: 20141022
  Receipt Date: 20141218
  Transmission Date: 20150529
  Serious: Yes (Life-Threatening, Hospitalization)
  Sender: FDA-Public Use
  Company Number: BR-SA-2014SA141906

PATIENT
  Age: 6 Year
  Sex: Female
  Weight: 24 kg

DRUGS (1)
  1. MYOZYME [Suspect]
     Active Substance: ALGLUCOSIDASE ALFA
     Indication: GLYCOGEN STORAGE DISEASE TYPE II
     Route: 041
     Dates: start: 20081212

REACTIONS (4)
  - Respiratory failure [Recovered/Resolved]
  - Pneumonia [Recovered/Resolved]
  - Atelectasis [Unknown]
  - Tracheostomy malfunction [Unknown]

NARRATIVE: CASE EVENT DATE: 20141007
